FAERS Safety Report 4748656-8 (Version None)
Quarter: 2005Q3

REPORT INFORMATION
  Report Type: 
  Country: None (occurrence: None)
  Receive Date: 20050819
  Receipt Date: 20040330
  Transmission Date: 20060218
  Serious: Yes (Hospitalization)
  Sender: FDA-Public Use
  Company Number: JP-SP-2004-01402

PATIENT
  Age: 42 Year
  Sex: Male

DRUGS (4)
  1. IMMUCYST [Suspect]
     Indication: BLADDER CANCER
     Dosage: 81 MG
     Route: 043
     Dates: start: 20040228, end: 20040322
  2. IMMUCYST [Suspect]
     Dosage: 81 MG
     Route: 043
     Dates: start: 20040228, end: 20040322
  3. IMMUCYST [Suspect]
     Dosage: 81 MG
     Route: 043
     Dates: start: 20040228, end: 20040322
  4. TAMSULOSIN HYDROCHLORIDE [Concomitant]

REACTIONS (5)
  - ARTHRALGIA [None]
  - DYSURIA [None]
  - HAEMATURIA [None]
  - POLLAKIURIA [None]
  - PYREXIA [None]
